FAERS Safety Report 22282592 (Version 1)
Quarter: 2023Q2

REPORT INFORMATION
  Report Type: Spontaneous
  Country: HU (occurrence: HU)
  Receive Date: 20230504
  Receipt Date: 20230504
  Transmission Date: 20230722
  Serious: Yes (Other)
  Sender: FDA-Public Use
  Company Number: HU-002147023-NVSC2023HU099428

PATIENT
  Age: 55 Year
  Sex: Female

DRUGS (3)
  1. TASIGNA [Suspect]
     Active Substance: NILOTINIB
     Indication: Chronic myeloid leukaemia
     Dosage: 300 MG, BID
     Route: 065
  2. TASIGNA [Suspect]
     Active Substance: NILOTINIB
     Dosage: 450 MG, QD
     Route: 065
     Dates: start: 2012, end: 2012
  3. TASIGNA [Suspect]
     Active Substance: NILOTINIB
     Dosage: 300 MG, QD
     Route: 065
     Dates: start: 2012

REACTIONS (6)
  - Hyperbilirubinaemia [Unknown]
  - Bone marrow failure [Unknown]
  - Bone marrow reticulin fibrosis [Unknown]
  - Lipase increased [Unknown]
  - Amylase increased [Unknown]
  - Hyperlipidaemia [Unknown]

NARRATIVE: CASE EVENT DATE: 20120101
